FAERS Safety Report 12766948 (Version 2)
Quarter: 2016Q4

REPORT INFORMATION
  Report Type: Report from Study
  Country: None (occurrence: FI)
  Receive Date: 20160921
  Receipt Date: 20161008
  Transmission Date: 20170207
  Serious: Yes (Hospitalization, Other)
  Sender: FDA-Public Use
  Company Number: FI-ABBVIE-16K-055-1731577-00

PATIENT
  Sex: Male

DRUGS (5)
  1. SOMAC [Concomitant]
     Active Substance: PANTOPRAZOLE SODIUM
     Indication: GASTRIC DISORDER
  2. DUODOPA [Suspect]
     Active Substance: CARBIDOPA\LEVODOPA
     Indication: PARKINSON^S DISEASE
     Dosage: MD 7.4 ML; 3.1 ML/H BETWEEN 6 AM AND 10 PM, NO NEED FOR EXTRA DOSES
     Route: 050
     Dates: start: 2013
  3. KALISOL [Concomitant]
     Indication: PRODUCT USED FOR UNKNOWN INDICATION
  4. PRECOSA [Concomitant]
     Indication: GASTRIC DISORDER
  5. GABAPENTIN. [Concomitant]
     Active Substance: GABAPENTIN
     Indication: PRODUCT USED FOR UNKNOWN INDICATION

REACTIONS (14)
  - Stoma site discharge [Recovered/Resolved]
  - Stoma site infection [Recovered/Resolved]
  - Device adhesion issue [Recovered/Resolved]
  - Device dislocation [Recovered/Resolved]
  - Stoma site extravasation [Recovered/Resolved]
  - C-reactive protein increased [Recovered/Resolved]
  - Fall [Recovering/Resolving]
  - Diarrhoea [Recovered/Resolved]
  - Mobility decreased [Recovered/Resolved]
  - Fall [Recovered/Resolved]
  - Gastrointestinal stoma complication [Recovered/Resolved]
  - Pyrexia [Recovered/Resolved]
  - Pain [Recovering/Resolving]
  - Parkinson^s disease [Recovering/Resolving]

NARRATIVE: CASE EVENT DATE: 2016
